FAERS Safety Report 9233399 (Version 1)
Quarter: 2013Q2

REPORT INFORMATION
  Report Type: Spontaneous
  Country: US (occurrence: US)
  Receive Date: 20130416
  Receipt Date: 20130416
  Transmission Date: 20140414
  Serious: No
  Sender: FDA-Public Use
  Company Number: US-BANPHARM-20131006

PATIENT
  Age: 92 Year
  Sex: Female
  Weight: 54.43 kg

DRUGS (3)
  1. ALEVE LIQUID GELS 220MG [Suspect]
     Indication: ARTHRITIS
     Dosage: USUALLY 2 DF QD, BUT 4 DF @ ONCE ON 22MAY12,
     Route: 048
     Dates: start: 2012
  2. HIGH CHOLESTEROL MEDICINE [Concomitant]
  3. HIGH BLOOD PRESSURE MEDICINE [Concomitant]

REACTIONS (3)
  - Dizziness [Recovered/Resolved]
  - Incorrect dose administered [Unknown]
  - Incorrect drug administration duration [Unknown]
